FAERS Safety Report 4503040-7 (Version None)
Quarter: 2004Q4

REPORT INFORMATION
  Report Type: 
  Country: None (occurrence: None)
  Receive Date: 20041112
  Receipt Date: 20041105
  Transmission Date: 20050328
  Serious: Yes (Hospitalization, Other)
  Sender: FDA-Public Use
  Company Number: 2004-10-1878

PATIENT
  Age: 65 Year
  Sex: Male

DRUGS (1)
  1. INTRON A [Suspect]
     Indication: B-CELL LYMPHOMA
     Dosage: 3 MIU  5XWK SUBCUTANEOUS
     Route: 058

REACTIONS (4)
  - AMYOTROPHY [None]
  - DISEASE RECURRENCE [None]
  - LYMPHOMA [None]
  - MYOSITIS [None]
